FAERS Safety Report 15468212 (Version 1)
Quarter: 2018Q4

REPORT INFORMATION
  Report Type: Spontaneous
  Country: RU (occurrence: RU)
  Receive Date: 20181005
  Receipt Date: 20181005
  Transmission Date: 20190204
  Serious: Yes (Other)
  Sender: FDA-Public Use
  Company Number: RU-TEVA-2018-RU-959032

PATIENT
  Age: 28 Year
  Sex: Male

DRUGS (1)
  1. FINLEPSIN [Suspect]
     Active Substance: CARBAMAZEPINE
     Route: 065

REACTIONS (3)
  - Intentional product use issue [Unknown]
  - Disorientation [Recovered/Resolved]
  - Confusional state [Recovered/Resolved]
